FAERS Safety Report 4445727-0 (Version None)
Quarter: 2004Q3

REPORT INFORMATION
  Report Type: 
  Country: None (occurrence: None)
  Receive Date: 20040903
  Receipt Date: 20040823
  Transmission Date: 20050211
  Serious: Yes (Death, Other)
  Sender: FDA-Public Use
  Company Number: USA-2004-0016563

PATIENT
  Age: 37 Year
  Sex: Male
  Weight: 94.3 kg

DRUGS (4)
  1. MORPHINE SULFATE [Suspect]
     Dosage: 90 MG, UNK, INTRAVENOUS
     Route: 042
  2. METHADONE HCL [Suspect]
     Dosage: UNK
     Route: 065
  3. COCAINE (COCAINE) [Suspect]
     Dosage: UNK
     Route: 065
  4. XANAX [Suspect]
     Dosage: UNK
     Route: 065

REACTIONS (10)
  - ANOXIC ENCEPHALOPATHY [None]
  - APNOEA [None]
  - COMA [None]
  - DRUG TOXICITY [None]
  - MULTIPLE DRUG OVERDOSE ACCIDENTAL [None]
  - POLYSUBSTANCE ABUSE [None]
  - PULSE ABSENT [None]
  - PUPIL FIXED [None]
  - REGURGITATION OF FOOD [None]
  - RESPIRATORY DISTRESS [None]
